FAERS Safety Report 6230033-4 (Version None)
Quarter: 2009Q2

REPORT INFORMATION
  Report Type: 
  Country: None (occurrence: None)
  Receive Date: 20090615
  Receipt Date: 20090603
  Transmission Date: 20091009
  Serious: Yes (Other)
  Sender: FDA-Public Use
  Company Number: US-PFIZER INC-2009204181

PATIENT
  Sex: Male
  Weight: 74.842 kg

DRUGS (2)
  1. CHANTIX [Suspect]
     Indication: SMOKING CESSATION THERAPY
     Dosage: 0.5 MG, UNK
     Route: 048
     Dates: start: 20090414, end: 20090401
  2. CHANTIX [Suspect]
     Indication: NICOTINE DEPENDENCE

REACTIONS (4)
  - DISORIENTATION [None]
  - NAUSEA [None]
  - ROAD TRAFFIC ACCIDENT [None]
  - SYNCOPE [None]
